FAERS Safety Report 9372106 (Version 1)
Quarter: 2013Q2

REPORT INFORMATION
  Report Type: Spontaneous
  Country: CN (occurrence: CN)
  Receive Date: 20130627
  Receipt Date: 20130627
  Transmission Date: 20140414
  Serious: Yes (Other)
  Sender: FDA-Public Use
  Company Number: CN-BAYER-2013-075965

PATIENT
  Age: 52 Year
  Sex: Male

DRUGS (1)
  1. NIMODIPINE [Suspect]
     Dosage: 50ML (IVGTT) AT 3ML/HR VIA MICRO-PUMP CONTINUOUSLY FOR 24 HOURS,THEN REDUCED TO 2ML/H
     Route: 042

REACTIONS (2)
  - Urinary retention [Recovered/Resolved]
  - Urinary retention [Recovered/Resolved]
